FAERS Safety Report 21580813 (Version 1)
Quarter: 2022Q4

REPORT INFORMATION
  Report Type: Spontaneous
  Country: AU (occurrence: AU)
  Receive Date: 20221111
  Receipt Date: 20221111
  Transmission Date: 20230112
  Serious: Yes (Other)
  Sender: FDA-Public Use
  Company Number: AU-BAXTER-2022BAX023931

PATIENT
  Sex: Male

DRUGS (5)
  1. DOXORUBICIN [Suspect]
     Active Substance: DOXORUBICIN
     Indication: Follicular lymphoma
     Dosage: 6 CYCLE, RCHOP THERAPY
     Route: 065
     Dates: start: 2014
  2. CYCLOPHOSPHAMIDE [Suspect]
     Active Substance: CYCLOPHOSPHAMIDE
     Indication: Follicular lymphoma
     Dosage: 6 CYCLE, RCHOP THERAPY
     Route: 065
     Dates: start: 2014
  3. RITUXIMAB [Suspect]
     Active Substance: RITUXIMAB
     Indication: Follicular lymphoma
     Dosage: 6 CYCLE, MAINTANANCE FOR 2 YEARS, RCHOP THERAPY
     Route: 065
     Dates: start: 2014
  4. VINCRISTINE [Suspect]
     Active Substance: VINCRISTINE
     Indication: Follicular lymphoma
     Dosage: 6 CYCLE, RCHOP THERAPY
     Route: 065
     Dates: start: 2014
  5. PREDNISONE [Suspect]
     Active Substance: PREDNISONE
     Indication: Follicular lymphoma
     Dosage: 6 CYCLE, RCHOP THERAPY
     Route: 065
     Dates: start: 2014

REACTIONS (4)
  - Lymphadenopathy [Unknown]
  - Abdominal lymphadenopathy [Unknown]
  - Hydronephrosis [Unknown]
  - Neoplasm progression [Unknown]
